FAERS Safety Report 6035282-6 (Version None)
Quarter: 2009Q1

REPORT INFORMATION
  Report Type: 
  Country: None (occurrence: None)
  Receive Date: 20090109
  Receipt Date: 20081229
  Transmission Date: 20090719
  Serious: Yes (Death)
  Sender: FDA-Public Use
  Company Number: ADE2008-0412

PATIENT
  Age: 74 Year
  Sex: Male

DRUGS (8)
  1. SIMVASTATIN [Suspect]
  2. ACETYLSALICYLIC ACID SRT [Suspect]
  3. AMLODIPINE BESYLATE [Suspect]
  4. IBUPROFEN [Suspect]
  5. OMEPRAZOLE [Suspect]
  6. PERINDOPRIL [Suspect]
  7. AMOXICILLIN [Concomitant]
  8. LEVOTHYROXINE SODIUM [Concomitant]

REACTIONS (17)
  - ACUTE RESPIRATORY DISTRESS SYNDROME [None]
  - ANOREXIA [None]
  - ANTINUCLEAR ANTIBODY POSITIVE [None]
  - COUGH [None]
  - DERMATOMYOSITIS [None]
  - DRUG ERUPTION [None]
  - GENERAL PHYSICAL HEALTH DETERIORATION [None]
  - HAEMOPTYSIS [None]
  - LOWER RESPIRATORY TRACT INFECTION [None]
  - MUSCULAR WEAKNESS [None]
  - OROPHARYNGEAL PAIN [None]
  - RASH [None]
  - RENAL FAILURE [None]
  - RENAL TUBULAR NECROSIS [None]
  - RESPIRATORY FAILURE [None]
  - VASCULITIS [None]
  - WEIGHT DECREASED [None]
